FAERS Safety Report 14068238 (Version 1)
Quarter: 2017Q4

REPORT INFORMATION
  Report Type: Spontaneous
  Country: US (occurrence: US)
  Receive Date: 20171010
  Receipt Date: 20171010
  Transmission Date: 20180321
  Serious: Yes (Hospitalization, Other)
  Sender: FDA-Public Use
  Company Number: US-AMGEN-USASP2017149474

PATIENT
  Sex: Male

DRUGS (6)
  1. PENTOSTATIN. [Suspect]
     Active Substance: PENTOSTATIN
     Indication: CHRONIC LYMPHOCYTIC LEUKAEMIA
     Dosage: 4 MG/M2, DAY 2 (CYCLE 1 ONLY) DAY 1 (CYCLE 2-6)
     Route: 042
     Dates: start: 20090921
  2. RITUXIMAB. [Suspect]
     Active Substance: RITUXIMAB
     Indication: CHRONIC LYMPHOCYTIC LEUKAEMIA
     Dosage: 375 MG/M2, CYCLE 3 (CYCLE 1 ONLY) DAY 1 (CYCLE 2-6)
     Route: 042
     Dates: start: 20090921
  3. CYCLOPHOSPHAMIDE. [Suspect]
     Active Substance: CYCLOPHOSPHAMIDE
     Indication: CHRONIC LYMPHOCYTIC LEUKAEMIA
     Dosage: 600 MG/M2, DAY 2 (CYCLE 1 ONLY) DAY 1 (CYCLE 2-6)
     Route: 042
     Dates: start: 20090921
  4. RITUXIMAB. [Suspect]
     Active Substance: RITUXIMAB
     Dosage: 100 MG/M2, CYCLE 2 CYCLE 1 ONLY; FLAT DOSE
     Route: 042
  5. PEGFILGRASTIM [Suspect]
     Active Substance: PEGFILGRASTIM
     Indication: CHRONIC LYMPHOCYTIC LEUKAEMIA
     Dosage: 6 MG, 3 OF COURSE 1 AND ON DAY 2 OF COURSE 2-6
     Route: 058
     Dates: start: 20090921
  6. BEVACIZUMAB. [Suspect]
     Active Substance: BEVACIZUMAB
     Indication: CHRONIC LYMPHOCYTIC LEUKAEMIA
     Dosage: 15 MG/KG, DAY 1 CYCLE 1-5, 22 ET 43 CYCLE 8
     Route: 042
     Dates: start: 20090921

REACTIONS (10)
  - Vomiting [Unknown]
  - Cough [Unknown]
  - Neutrophil count decreased [Unknown]
  - Oedema peripheral [Unknown]
  - Dyspnoea [Unknown]
  - Urinary bladder haemorrhage [Unknown]
  - Proteinuria [Unknown]
  - Cystitis [Unknown]
  - Pneumonitis [Unknown]
  - Lung infiltration [Unknown]

NARRATIVE: CASE EVENT DATE: 20100225
